FAERS Safety Report 22782123 (Version 3)
Quarter: 2023Q4

REPORT INFORMATION
  Report Type: Report from Study
  Country: US (occurrence: US)
  Receive Date: 20230803
  Receipt Date: 20231031
  Transmission Date: 20240110
  Serious: Yes (Other)
  Sender: FDA-Public Use
  Company Number: US-OTSUKA-2023_019209

PATIENT
  Sex: Female

DRUGS (2)
  1. TOLVAPTAN [Suspect]
     Active Substance: TOLVAPTAN
     Indication: Congenital cystic kidney disease
     Dosage: UNK
     Route: 065
     Dates: start: 20230712
  2. TOLVAPTAN [Suspect]
     Active Substance: TOLVAPTAN
     Indication: Congenital cystic kidney disease
     Dosage: UNK
     Route: 065
     Dates: start: 20230325

REACTIONS (11)
  - Eye haemorrhage [Unknown]
  - Ocular discomfort [Unknown]
  - Catheterisation cardiac [Unknown]
  - Conjunctival haemorrhage [Unknown]
  - Headache [Unknown]
  - Photophobia [Unknown]
  - Epistaxis [Unknown]
  - Blood pressure increased [Unknown]
  - Polydipsia [Unknown]
  - Thirst [Unknown]
  - Polyuria [Unknown]

NARRATIVE: CASE EVENT DATE: 20230714
